FAERS Safety Report 4345728-7 (Version None)
Quarter: 2004Q2

REPORT INFORMATION
  Report Type: 
  Country: None (occurrence: None)
  Receive Date: 20040421
  Receipt Date: 20040413
  Transmission Date: 20050107
  Serious: Yes (Hospitalization)
  Sender: FDA-Public Use
  Company Number: 04P-087-0249452-00

PATIENT
  Age: 68 Year
  Sex: Male

DRUGS (2)
  1. ISOPTIN [Suspect]
     Indication: MYOCARDIAL ISCHAEMIA
     Dosage: PER ORAL
     Route: 048
     Dates: end: 20031218
  2. WARFARIN SODIUM [Concomitant]

REACTIONS (9)
  - ALANINE AMINOTRANSFERASE INCREASED [None]
  - ANOREXIA [None]
  - ASPARTATE AMINOTRANSFERASE INCREASED [None]
  - ERYTHEMA [None]
  - HEPATIC FUNCTION ABNORMAL [None]
  - MALAISE [None]
  - PRURITUS [None]
  - TACHYCARDIA [None]
  - TOXIC SKIN ERUPTION [None]
